FAERS Safety Report 17929711 (Version 4)
Quarter: 2020Q3

REPORT INFORMATION
  Report Type: Spontaneous
  Country: US (occurrence: US)
  Receive Date: 20200623
  Receipt Date: 20200824
  Transmission Date: 20201103
  Serious: Yes (Other)
  Sender: FDA-Public Use
  Company Number: US-PFIZER INC-2020241428

PATIENT
  Age: 18 Year
  Sex: Female
  Weight: 91 kg

DRUGS (5)
  1. ROCURONIUM BROMIDE. [Suspect]
     Active Substance: ROCURONIUM BROMIDE
     Indication: ANAESTHESIA
     Dosage: 10 MG (1 DOSE)
     Route: 042
     Dates: start: 20200618, end: 20200618
  2. PROPOFOL. [Suspect]
     Active Substance: PROPOFOL
     Indication: ANAESTHESIA
     Dosage: 200 MG ( 1 DOSE)
     Route: 042
     Dates: start: 20200618, end: 20200618
  3. SUCCINYLCHOLINE BROMIDE [Suspect]
     Active Substance: SUXAMETHONIUM BROMIDE
     Dosage: 60 MG
     Route: 042
     Dates: start: 20200618, end: 20200618
  4. FENTANYL CITRATE. [Suspect]
     Active Substance: FENTANYL CITRATE
     Indication: ANAESTHESIA
     Dosage: 50 UG (2 DOSES TO EQUAL 100MCG TOTAL)
     Dates: start: 20200618, end: 20200618
  5. SEVOFLURANE. [Suspect]
     Active Substance: SEVOFLURANE
     Indication: ANAESTHESIA
     Dosage: UNK
     Dates: start: 20200618, end: 20200618

REACTIONS (3)
  - Hypertension [Unknown]
  - Bradycardia [Recovered/Resolved]
  - Hypotension [Recovered/Resolved]

NARRATIVE: CASE EVENT DATE: 20200618
